FAERS Safety Report 20308687 (Version 1)
Quarter: 2022Q1

REPORT INFORMATION
  Report Type: Spontaneous
  Country: IT (occurrence: IT)
  Receive Date: 20220107
  Receipt Date: 20220107
  Transmission Date: 20220423
  Serious: Yes (Other)
  Sender: FDA-Public Use
  Company Number: IT-PFM-2021-12211

PATIENT
  Age: 84 Year
  Sex: Female

DRUGS (2)
  1. AZITHROMYCIN [Suspect]
     Active Substance: AZITHROMYCIN
     Dosage: UNK
     Route: 065
  2. CEFTRIAXONE [Suspect]
     Active Substance: CEFTRIAXONE
     Dosage: UNK
     Route: 065

REACTIONS (5)
  - Staphylococcus test positive [Recovering/Resolving]
  - Escherichia infection [Recovering/Resolving]
  - Proteus infection [Recovering/Resolving]
  - Off label use [Unknown]
  - Product use issue [Unknown]
